FAERS Safety Report 23766640 (Version 6)
Quarter: 2024Q3

REPORT INFORMATION
  Report Type: Report from Study
  Country: KR (occurrence: KR)
  Receive Date: 20240422
  Receipt Date: 20240704
  Transmission Date: 20241017
  Serious: Yes (Hospitalization)
  Sender: NOVARTIS
  Company Number: KR-002147023-NVSC2024KR070409

PATIENT
  Sex: Male

DRUGS (3)
  1. LUTATHERA [Suspect]
     Active Substance: LUTETIUM OXODOTREOTIDE LU-177
     Indication: Neuroendocrine tumour
     Dosage: 7.4 GBQ, UNKNOWN
     Route: 042
     Dates: start: 20231012, end: 20231012
  2. LUTATHERA [Suspect]
     Active Substance: LUTETIUM OXODOTREOTIDE LU-177
     Dosage: 7.4 GBQ, UNKNOWN
     Route: 042
     Dates: start: 20240314, end: 20240314
  3. LUTATHERA [Suspect]
     Active Substance: LUTETIUM OXODOTREOTIDE LU-177
     Dosage: 7.4 GBQ, UNKNOWN
     Route: 042
     Dates: start: 20240530, end: 20240530

REACTIONS (9)
  - Platelet count decreased [Recovered/Resolved]
  - Tooth pulp haemorrhage [Recovered/Resolved]
  - Red blood cell count decreased [Unknown]
  - Contusion [Recovered/Resolved]
  - Platelet count decreased [Recovered/Resolved]
  - Platelet count decreased [Unknown]
  - Constipation [Recovering/Resolving]
  - Inappropriate schedule of product administration [Recovered/Resolved]
  - Inappropriate schedule of product administration [Recovered/Resolved]

NARRATIVE: CASE EVENT DATE: 20230101
